FAERS Safety Report 14911931 (Version 4)
Quarter: 2018Q4

REPORT INFORMATION
  Report Type: Spontaneous
  Country: US (occurrence: US)
  Receive Date: 20180518
  Receipt Date: 20181121
  Transmission Date: 20190204
  Serious: Yes (Other)
  Sender: FDA-Public Use
  Company Number: PHEH2018US019143

PATIENT
  Sex: Male

DRUGS (2)
  1. AFINITOR [Suspect]
     Active Substance: EVEROLIMUS
     Indication: RENAL CANCER
     Dosage: 5 MG, QD
     Route: 048
     Dates: start: 20170120
  2. LENVATINIB [Suspect]
     Active Substance: LENVATINIB
     Indication: RENAL CANCER
     Dosage: 10 MG, QD
     Route: 048
     Dates: start: 20170120

REACTIONS (9)
  - Rash [Recovered/Resolved]
  - Chronic kidney disease [Unknown]
  - Dysgeusia [Recovering/Resolving]
  - Renal cancer [Unknown]
  - Malignant neoplasm progression [Unknown]
  - Dysphonia [Recovering/Resolving]
  - Fatigue [Unknown]
  - Platelet count decreased [Recovered/Resolved]
  - Renal impairment [Unknown]
